FAERS Safety Report 8280819-X (Version None)
Quarter: 2012Q2

REPORT INFORMATION
  Report Type: 
  Country: None (occurrence: None)
  Receive Date: 20120412
  Receipt Date: 20120404
  Transmission Date: 20120825
  Serious: Yes (Congenital Anomaly, Other)
  Sender: FDA-Public Use
  Company Number: US-ABBOTT-12P-163-0902547-00

PATIENT

DRUGS (2)
  1. KALETRA [Suspect]
     Indication: MATERNAL EXPOSURE TIMING UNSPECIFIED
     Route: 064
  2. COMBIVIR [Suspect]
     Indication: MATERNAL EXPOSURE TIMING UNSPECIFIED
     Route: 064

REACTIONS (11)
  - HYDROPS FOETALIS [None]
  - ASCITES [None]
  - JAUNDICE [None]
  - CARDIAC MURMUR [None]
  - PREMATURE BABY [None]
  - ATRIAL SEPTAL DEFECT [None]
  - LIMB MALFORMATION [None]
  - TALIPES [None]
  - ANAEMIA [None]
  - FOETAL EXPOSURE DURING PREGNANCY [None]
  - DYSMORPHISM [None]
